FAERS Safety Report 24302997 (Version 4)
Quarter: 2025Q2

REPORT INFORMATION
  Report Type: Report from Study
  Country: MX (occurrence: MX)
  Receive Date: 20240910
  Receipt Date: 20250530
  Transmission Date: 20250716
  Serious: Yes (Life-Threatening, Hospitalization, Other)
  Sender: NOVARTIS
  Company Number: MX-002147023-NVSC2024MX038382

PATIENT
  Age: 54 Year
  Sex: Female
  Weight: 63 kg

DRUGS (9)
  1. KISQALI [Suspect]
     Active Substance: RIBOCICLIB SUCCINATE
     Indication: Breast cancer metastatic
     Dosage: 600 MG, QD (200 MG X 3 DOSAGE FORMS)
     Route: 048
     Dates: start: 20231001, end: 20240819
  2. KISQALI [Suspect]
     Active Substance: RIBOCICLIB SUCCINATE
     Indication: Metastases to the mediastinum
     Dosage: 600 MG, QD (200 MG X 3 DOSAGE FORMS)
     Route: 048
     Dates: start: 202311
  3. KISQALI [Suspect]
     Active Substance: RIBOCICLIB SUCCINATE
     Indication: Breast cancer
     Route: 048
  4. KISQALI [Suspect]
     Active Substance: RIBOCICLIB SUCCINATE
     Dosage: 2 DOSAGE FORM, QD
     Route: 048
     Dates: start: 20240829
  5. KISQALI [Suspect]
     Active Substance: RIBOCICLIB SUCCINATE
     Dosage: 600 MG, QD (200 MG X 3 DOSAGE FORMS)
     Route: 048
  6. FILGRASTIM [Concomitant]
     Active Substance: FILGRASTIM
     Indication: Decreased immune responsiveness
     Route: 030
     Dates: start: 20231001
  7. FILGRASTIM [Concomitant]
     Active Substance: FILGRASTIM
     Dosage: 1 DOSAGE FORM, QW
     Route: 058
     Dates: start: 202311
  8. FULVESTRANT [Concomitant]
     Active Substance: FULVESTRANT
     Indication: Breast cancer metastatic
     Dosage: 2 DOSAGE FORM, QMO
     Route: 030
     Dates: start: 20231001
  9. FULVESTRANT [Concomitant]
     Active Substance: FULVESTRANT
     Dosage: 2 DOSAGE FORM, QMO
     Route: 030
     Dates: start: 202311

REACTIONS (31)
  - Feeling abnormal [Unknown]
  - Lung neoplasm malignant [Unknown]
  - Fatigue [Not Recovered/Not Resolved]
  - Cough [Unknown]
  - COVID-19 [Recovered/Resolved]
  - Nasopharyngitis [Not Recovered/Not Resolved]
  - Ocular discomfort [Unknown]
  - Malaise [Unknown]
  - Headache [Unknown]
  - Diarrhoea [Recovered/Resolved]
  - Asthenia [Not Recovered/Not Resolved]
  - Nausea [Not Recovered/Not Resolved]
  - Muscle spasms [Not Recovered/Not Resolved]
  - Dyspepsia [Not Recovered/Not Resolved]
  - Hypoaesthesia [Recovered/Resolved]
  - Onychalgia [Not Recovered/Not Resolved]
  - Pigmentation disorder [Not Recovered/Not Resolved]
  - Confusional state [Recovering/Resolving]
  - Memory impairment [Recovering/Resolving]
  - Pruritus [Not Recovered/Not Resolved]
  - Dry skin [Not Recovered/Not Resolved]
  - Arthralgia [Not Recovered/Not Resolved]
  - Insomnia [Unknown]
  - Gastrointestinal inflammation [Not Recovered/Not Resolved]
  - Weight decreased [Not Recovered/Not Resolved]
  - Neoplasm [Unknown]
  - Food craving [Unknown]
  - Parosmia [Unknown]
  - Stress [Not Recovered/Not Resolved]
  - Decreased appetite [Not Recovered/Not Resolved]
  - Off label use [Not Recovered/Not Resolved]

NARRATIVE: CASE EVENT DATE: 20231101
